FAERS Safety Report 4532057-1 (Version None)
Quarter: 2004Q4

REPORT INFORMATION
  Report Type: 
  Country: None (occurrence: None)
  Receive Date: 20041220
  Receipt Date: 20040913
  Transmission Date: 20050328
  Serious: Yes (Other)
  Sender: FDA-Public Use
  Company Number: DE-GLAXOSMITHKLINE-D0044673A

PATIENT
  Sex: Male

DRUGS (1)
  1. ELMENDOS [Suspect]
     Indication: PROPHYLAXIS
     Dosage: 50MG PER DAY
     Route: 065
     Dates: start: 20040101

REACTIONS (2)
  - PROSTATITIS [None]
  - URINARY RETENTION [None]
